FAERS Safety Report 21633675 (Version 3)
Quarter: 2023Q1

REPORT INFORMATION
  Report Type: Report from Study
  Country: US (occurrence: US)
  Receive Date: 20221123
  Receipt Date: 20230219
  Transmission Date: 20230418
  Serious: No
  Sender: FDA-Public Use
  Company Number: US-002147023-NVSC2022US262893

PATIENT
  Sex: Female

DRUGS (1)
  1. TASIGNA [Suspect]
     Active Substance: NILOTINIB
     Indication: Product used for unknown indication
     Dosage: 150 MG, OTHER
     Route: 065
     Dates: start: 20180910, end: 20221027

REACTIONS (2)
  - Abdominal discomfort [Unknown]
  - Hypoacusis [Unknown]
